FAERS Safety Report 7502916-6 (Version None)
Quarter: 2011Q2

REPORT INFORMATION
  Report Type: 
  Country: None (occurrence: None)
  Receive Date: 20110524
  Receipt Date: 20110524
  Transmission Date: 20111010
  Serious: Yes (Other)
  Sender: FDA-Public Use
  Company Number: None

PATIENT
  Sex: Female
  Weight: 89.9 kg

DRUGS (1)
  1. RITUXAN [Suspect]
     Indication: B-CELL LYMPHOMA
     Dosage: 700MG X1 IVPB
     Route: 042
     Dates: start: 20100709

REACTIONS (6)
  - TACHYCARDIA [None]
  - DYSPNOEA [None]
  - ABDOMINAL PAIN UPPER [None]
  - HYPOXIA [None]
  - DYSGEUSIA [None]
  - HYPERTENSION [None]
